FAERS Safety Report 7790466-1 (Version None)
Quarter: 2011Q3

REPORT INFORMATION
  Report Type: 
  Country: None (occurrence: None)
  Receive Date: 20110930
  Receipt Date: 20110923
  Transmission Date: 20111222
  Serious: Yes (Hospitalization)
  Sender: FDA-Public Use
  Company Number: CZ-JNJFOC-20110910521

PATIENT
  Sex: Female

DRUGS (7)
  1. CALCIUM CARBONATE [Concomitant]
  2. MEDROL [Concomitant]
  3. LORISTA [Concomitant]
  4. LOKREN [Concomitant]
  5. ALENDRONATE SODIUM [Concomitant]
  6. SIMPONI [Suspect]
     Indication: RHEUMATOID ARTHRITIS
     Route: 058
     Dates: start: 20110309
  7. ALL OTHER THERAPEUTIC PRODUCTS [Concomitant]

REACTIONS (1)
  - CAMPYLOBACTER INFECTION [None]
